FAERS Safety Report 8769577 (Version 3)
Quarter: 2012Q4

REPORT INFORMATION
  Report Type: 
  Country: US (occurrence: US)
  Receive Date: 20120905
  Receipt Date: 20121022
  Transmission Date: 20130627
  Serious: Yes (Other)
  Sender: FDA-Public Use
  Company Number: US-PFIZER INC-2012215126

PATIENT
  Age: 55 Year
  Sex: Female
  Weight: 54.42 kg

DRUGS (6)
  1. EFFEXOR XR [Suspect]
     Indication: DEPRESSION
     Dosage: 150 mg, 1x/day
     Route: 048
     Dates: start: 201204, end: 201209
  2. EFFEXOR XR [Suspect]
     Indication: ANXIETY
  3. CLONAZEPAM [Concomitant]
     Dosage: UNK
  4. SYNTHROID [Concomitant]
     Indication: AUTOIMMUNE THYROIDITIS
     Dosage: UNK
  5. AMBIEN [Concomitant]
     Dosage: 10 mg, at bedtime
  6. KLONOPIN [Concomitant]
     Dosage: 0.5 UNK, 2hs

REACTIONS (8)
  - Depression [Recovered/Resolved]
  - Anxiety [Recovered/Resolved]
  - Panic reaction [Unknown]
  - Dry mouth [Unknown]
  - Decreased appetite [Unknown]
  - Nervousness [Unknown]
  - Drug effect incomplete [Unknown]
  - Nausea [Recovered/Resolved]
